FAERS Safety Report 6938674-3 (Version None)
Quarter: 2010Q3

REPORT INFORMATION
  Report Type: 
  Country: None (occurrence: None)
  Receive Date: 20100824
  Receipt Date: 20100809
  Transmission Date: 20110219
  Serious: Yes (Hospitalization)
  Sender: FDA-Public Use
  Company Number: PHHY2009DE09336

PATIENT
  Age: 66 Year
  Sex: Male
  Weight: 87 kg

DRUGS (13)
  1. RASILEZ [Suspect]
     Indication: HYPERTENSION
     Dosage: 300 MG, QD
     Route: 048
     Dates: start: 20080101, end: 20081210
  2. FRUSEMIDE [Suspect]
  3. ASPIRIN [Concomitant]
     Indication: PROPHYLAXIS
     Dosage: 100 MG, QD
     Route: 048
  4. AZOPT [Concomitant]
     Indication: GLAUCOMA
     Dosage: 1GTT DROP(S) TWO DOSAGES PER DAY
     Route: 047
  5. BIFITERAL ^PHILIPS^ [Concomitant]
     Indication: CONSTIPATION
     Dosage: UNK
     Route: 048
  6. DELMUNO [Concomitant]
     Indication: HYPERTENSION
     Dosage: 5 MG, QD
     Route: 048
  7. EBRANTIL [Concomitant]
     Indication: HYPERTENSION
     Dosage: 90 MG, BID
     Route: 048
  8. EINSALPHA [Concomitant]
     Indication: OSTEOPOROSIS
     Dosage: 0.25 MG, QD
     Route: 048
  9. LANTUS [Concomitant]
     Indication: TYPE 2 DIABETES MELLITUS
     Dosage: 20 IU, QD
     Route: 058
  10. LIPROLOG [Concomitant]
     Indication: TYPE 2 DIABETES MELLITUS
     Dosage: 3 UNK, TID
     Route: 058
     Dates: start: 19980101
  11. MOXONIDINE [Concomitant]
     Indication: HYPERTENSION
     Dosage: 1 DF, BID
     Route: 048
  12. MUCOFALK [Concomitant]
     Indication: CONSTIPATION
     Dosage: 5 MG, BID
     Route: 048
  13. NEXIUM [Concomitant]
     Indication: REFLUX OESOPHAGITIS
     Dosage: 40 MG, QD
     Route: 048

REACTIONS (2)
  - DYSPNOEA [None]
  - THERAPEUTIC PRODUCT INEFFECTIVE [None]
